FAERS Safety Report 14895842 (Version 5)
Quarter: 2019Q2

REPORT INFORMATION
  Report Type: Report from Study
  Country: US (occurrence: US)
  Receive Date: 20180515
  Receipt Date: 20190607
  Transmission Date: 20190711
  Serious: Yes (Other)
  Sender: FDA-Public Use
  Company Number: US-ROCHE-2117380

PATIENT
  Sex: Male

DRUGS (27)
  1. CELLCEPT [Suspect]
     Active Substance: MYCOPHENOLATE MOFETIL\MYCOPHENOLATE MOFETIL HYDROCHLORIDE
     Indication: OFF LABEL USE
     Route: 048
  2. PREDNISONE. [Concomitant]
     Active Substance: PREDNISONE
     Route: 065
  3. PRILOSEC [Concomitant]
     Active Substance: OMEPRAZOLE MAGNESIUM
     Indication: OFF LABEL USE
     Route: 065
  4. LIPITOR [Concomitant]
     Active Substance: ATORVASTATIN CALCIUM
     Indication: OFF LABEL USE
     Route: 065
  5. LEVOTHYROXIN [Concomitant]
     Active Substance: LEVOTHYROXINE
     Indication: OFF LABEL USE
     Route: 048
  6. CELLCEPT [Suspect]
     Active Substance: MYCOPHENOLATE MOFETIL\MYCOPHENOLATE MOFETIL HYDROCHLORIDE
     Indication: SYNOVITIS
     Route: 048
  7. VALIUM [Suspect]
     Active Substance: DIAZEPAM
     Indication: OFF LABEL USE
  8. ACTOS [Concomitant]
     Active Substance: PIOGLITAZONE HYDROCHLORIDE
     Indication: OFF LABEL USE
     Route: 065
  9. SIMVASTATIN. [Concomitant]
     Active Substance: SIMVASTATIN
     Indication: OFF LABEL USE
     Route: 048
  10. METFORMIN [Concomitant]
     Active Substance: METFORMIN HYDROCHLORIDE
     Indication: OFF LABEL USE
     Route: 065
  11. CELLCEPT [Suspect]
     Active Substance: MYCOPHENOLATE MOFETIL\MYCOPHENOLATE MOFETIL HYDROCHLORIDE
     Indication: MYASTHENIA GRAVIS
     Dosage: 3 TABLETS
     Route: 048
  12. VALIUM [Suspect]
     Active Substance: DIAZEPAM
     Indication: PRODUCT USED FOR UNKNOWN INDICATION
     Route: 048
  13. VERAPAMIL [Concomitant]
     Active Substance: VERAPAMIL HYDROCHLORIDE
     Indication: OFF LABEL USE
  14. HYOSCYAMINE. [Concomitant]
     Active Substance: HYOSCYAMINE
     Indication: OFF LABEL USE
     Route: 065
  15. XANAX [Concomitant]
     Active Substance: ALPRAZOLAM
     Indication: OFF LABEL USE
     Route: 065
  16. VALGANCICLOVIR. [Suspect]
     Active Substance: VALGANCICLOVIR
     Indication: OFF LABEL USE
  17. ACEON [Concomitant]
     Active Substance: PERINDOPRIL ERBUMINE
     Indication: OFF LABEL USE
     Route: 065
  18. MESTINON [Concomitant]
     Active Substance: PYRIDOSTIGMINE BROMIDE
     Indication: OFF LABEL USE
     Route: 065
  19. VALGANCICLOVIR. [Suspect]
     Active Substance: VALGANCICLOVIR
     Indication: SYNOVITIS
  20. ALPRAZOLAM. [Concomitant]
     Active Substance: ALPRAZOLAM
     Indication: OFF LABEL USE
     Route: 048
  21. PREDNISONE. [Concomitant]
     Active Substance: PREDNISONE
     Indication: OFF LABEL USE
     Route: 065
  22. GLUCOPHAGE [Concomitant]
     Active Substance: METFORMIN HYDROCHLORIDE
     Indication: OFF LABEL USE
     Route: 065
  23. ASPIRIN [ACETYLSALICYLIC ACID] [Concomitant]
     Active Substance: ASPIRIN
     Indication: OFF LABEL USE
     Route: 065
  24. ENALAPRIL [Concomitant]
     Active Substance: ENALAPRIL
     Indication: OFF LABEL USE
     Route: 048
  25. VALGANCICLOVIR. [Suspect]
     Active Substance: VALGANCICLOVIR
     Indication: MYASTHENIA GRAVIS
     Route: 065
  26. LEVSINEX [Concomitant]
     Active Substance: HYOSCYAMINE SULFATE
     Indication: OFF LABEL USE
  27. SYNTHROID [Concomitant]
     Active Substance: LEVOTHYROXINE SODIUM
     Indication: OFF LABEL USE
     Route: 065

REACTIONS (19)
  - Pneumonia [Unknown]
  - Salivary hypersecretion [Unknown]
  - Weight abnormal [Unknown]
  - Eyelid ptosis [Unknown]
  - Off label use [Unknown]
  - Eye disorder [Unknown]
  - Arthralgia [Unknown]
  - Dyspnoea [Unknown]
  - Malaise [Unknown]
  - Speech disorder [Unknown]
  - Neuralgia [Unknown]
  - Gastrointestinal pain [Unknown]
  - Depression [Unknown]
  - Visual impairment [Unknown]
  - Cataract [Unknown]
  - Intentional product use issue [Unknown]
  - Gait disturbance [Unknown]
  - Myasthenia gravis [Unknown]
  - Diplopia [Unknown]
